FAERS Safety Report 18970320 (Version 8)
Quarter: 2022Q4

REPORT INFORMATION
  Report Type: Other
  Country: CA (occurrence: None)
  Receive Date: 20210305
  Receipt Date: 20221026
  Transmission Date: 20230113
  Serious: Yes (Hospitalization, Other)
  Sender: FDA-Public Use
  Company Number: CA-ROCHE-2192256

PATIENT
  Age: 51 Year
  Sex: Female
  Weight: 52.210 kg

DRUGS (11)
  1. OCREVUS [Suspect]
     Active Substance: OCRELIZUMAB
     Indication: Primary progressive multiple sclerosis
     Dosage: AT DAY 0 AND 14 AND THEN 600 MG ONCE PER 6 MONTHS?CONCENTRATE FOR IV INFUSION
     Route: 042
     Dates: start: 20180423
  2. OCREVUS [Suspect]
     Active Substance: OCRELIZUMAB
     Indication: Multiple sclerosis
     Route: 042
  3. ESTRADIOL [Concomitant]
     Active Substance: ESTRADIOL
     Dosage: YES
     Route: 048
     Dates: start: 201711
  4. TOVIAZ [Concomitant]
     Active Substance: FESOTERODINE FUMARATE
     Indication: Bladder disorder
     Dosage: YES
     Dates: start: 201711
  5. MYRBETRIQ [Concomitant]
     Active Substance: MIRABEGRON
     Indication: Bladder disorder
     Dosage: YES
     Route: 048
     Dates: start: 201711
  6. BACLOFEN [Concomitant]
     Active Substance: BACLOFEN
     Indication: Pain
     Dosage: 20 MG TWO TO THREE TIMES DAILY ;ONGOING: YES
     Route: 048
     Dates: start: 2016
  7. CITALOPRAM [Concomitant]
     Active Substance: CITALOPRAM HYDROBROMIDE
     Indication: Anxiety
     Dosage: YES
     Route: 048
     Dates: start: 2016
  8. NAPROXEN [Concomitant]
     Active Substance: NAPROXEN
     Indication: Pain
     Dosage: YES
     Route: 048
     Dates: start: 201803
  9. GABAPENTIN [Concomitant]
     Active Substance: GABAPENTIN
     Indication: Pain
     Dosage: YES
     Route: 048
     Dates: start: 201809
  10. NITROFURANTOIN [Concomitant]
     Active Substance: NITROFURANTOIN
     Dosage: YES
     Dates: start: 201711
  11. NITROFURANTOIN [Concomitant]
     Active Substance: NITROFURANTOIN
     Dosage: YES

REACTIONS (11)
  - Infection [Not Recovered/Not Resolved]
  - Infusion related reaction [Recovered/Resolved]
  - Nephrolithiasis [Not Recovered/Not Resolved]
  - Asthenia [Unknown]
  - Urinary tract infection [Recovered/Resolved]
  - Cystitis [Recovered/Resolved]
  - Musculoskeletal stiffness [Not Recovered/Not Resolved]
  - Ulcer [Not Recovered/Not Resolved]
  - Haematochezia [Not Recovered/Not Resolved]
  - Muscle tightness [Not Recovered/Not Resolved]
  - Mobility decreased [Unknown]

NARRATIVE: CASE EVENT DATE: 20180507
